FAERS Safety Report 4848526-0 (Version None)
Quarter: 2005Q4

REPORT INFORMATION
  Report Type: 
  Country: None (occurrence: None)
  Receive Date: 20051208
  Receipt Date: 20051123
  Transmission Date: 20060501
  Serious: Yes (Hospitalization)
  Sender: FDA-Public Use
  Company Number: GBWYE132211NOV05

PATIENT
  Sex: Male
  Weight: 62 kg

DRUGS (4)
  1. ENBREL [Suspect]
     Indication: RHEUMATOID ARTHRITIS
     Route: 058
     Dates: start: 20050401, end: 20050715
  2. ALENDRONATE SODIUM [Concomitant]
     Route: 065
     Dates: start: 20040101
  3. ARTHROTEC [Concomitant]
     Dosage: 2 TABLETS DAILY
     Route: 065
  4. CO-DYDRAMOL [Concomitant]
     Dosage: UP TO 8 (UNSPECIFIED) A DAY
     Route: 065

REACTIONS (2)
  - ROSAI-DORFMAN SYNDROME [None]
  - WEIGHT DECREASED [None]
